FAERS Safety Report 5712222-8 (Version None)
Quarter: 2008Q2

REPORT INFORMATION
  Report Type: 
  Country: None (occurrence: None)
  Receive Date: 20080422
  Receipt Date: 20080410
  Transmission Date: 20081010
  Serious: Yes (Hospitalization)
  Sender: FDA-Public Use
  Company Number: CH-JNJFOC-20080403546

PATIENT
  Age: 86 Year
  Sex: Female

DRUGS (23)
  1. REOPRO [Suspect]
     Dosage: 12 HOURS, 340 UG/KG TOTAL
     Route: 042
  2. REOPRO [Suspect]
     Indication: CATHETERISATION CARDIAC
     Dosage: 340 UG/KG
     Route: 042
  3. AUGMENTIN '125' [Suspect]
     Indication: LUNG INFECTION
     Route: 042
  4. LIQUAEMIN INJ [Suspect]
     Indication: CATHETERISATION CARDIAC
     Route: 042
  5. CORDARONE [Suspect]
     Indication: CATHETERISATION CARDIAC
     Route: 042
  6. LIDOCAINE [Concomitant]
     Indication: CATHETERISATION CARDIAC
     Route: 058
  7. PRIMPERAN INJ [Concomitant]
     Route: 040
  8. VISIPAQUE [Concomitant]
     Indication: CATHETERISATION CARDIAC
     Route: 013
  9. DOBUTAMINE HYDROCHLORIDE [Concomitant]
     Indication: CARDIOGENIC SHOCK
     Route: 041
  10. LASIX [Concomitant]
     Route: 040
  11. GLYCERYL TRINITRATE [Concomitant]
     Route: 040
  12. MORPHINE HCL ELIXIR [Concomitant]
     Route: 040
  13. ASPIRIN [Concomitant]
     Route: 048
  14. PLAVIX [Concomitant]
     Route: 048
  15. DISTRANEURIN [Concomitant]
     Route: 048
  16. ENALAPRIL MALEATE [Concomitant]
     Route: 048
  17. LOPIRIN [Concomitant]
     Route: 048
  18. ZALDIAR [Concomitant]
     Route: 048
  19. FOSAVANCE [Concomitant]
     Route: 048
  20. LISINOPRIL [Concomitant]
     Route: 048
  21. SEROPRAM [Concomitant]
     Route: 048
  22. DAFALGAN [Concomitant]
  23. ARICEPT [Concomitant]
     Route: 048

REACTIONS (6)
  - ATRIAL FIBRILLATION [None]
  - CARDIOGENIC SHOCK [None]
  - CATHETER SITE HAEMORRHAGE [None]
  - LUNG INFECTION [None]
  - THROMBOCYTOPENIA [None]
  - VENTRICULAR TACHYCARDIA [None]
